FAERS Safety Report 12497569 (Version 1)
Quarter: 2016Q2

REPORT INFORMATION
  Report Type: Spontaneous
  Country: US (occurrence: US)
  Receive Date: 20160625
  Receipt Date: 20160625
  Transmission Date: 20160815
  Serious: Yes (Other)
  Sender: FDA-Public Use
  Company Number: PHHY2016US085237

PATIENT
  Age: 27 Year
  Sex: Female

DRUGS (1)
  1. LOPERAMIDE [Suspect]
     Active Substance: LOPERAMIDE
     Indication: PRODUCT USED FOR UNKNOWN INDICATION
     Dosage: 70 MG, QD
     Route: 065

REACTIONS (5)
  - Overdose [Unknown]
  - Unmasking of previously unidentified disease [Unknown]
  - Syncope [Unknown]
  - Brugada syndrome [Unknown]
  - Drug abuse [Unknown]
